FAERS Safety Report 10778921 (Version 1)
Quarter: 2015Q1

REPORT INFORMATION
  Report Type: Spontaneous
  Country: US (occurrence: None)
  Receive Date: 20150206
  Receipt Date: 20150206
  Transmission Date: 20150721
  Serious: Yes (Death)
  Sender: FDA-Public Use
  Company Number: TPU2015-00033

PATIENT
  Age: 94 Year
  Sex: Female

DRUGS (1)
  1. LIDODERM [Suspect]
     Active Substance: LIDOCAINE
     Route: 061

REACTIONS (1)
  - Death [None]
